FAERS Safety Report 7208668-1 (Version None)
Quarter: 2011Q1

REPORT INFORMATION
  Report Type: 
  Country: None (occurrence: None)
  Receive Date: 20110104
  Receipt Date: 20101227
  Transmission Date: 20110831
  Serious: Yes (Other)
  Sender: FDA-Public Use
  Company Number: US-ROCHE-750668

PATIENT
  Age: 47 Year
  Sex: Male

DRUGS (14)
  1. TENOFOVIR DISOPROXIL FUMARATE [Concomitant]
     Route: 048
  2. EMTRICITABINE [Concomitant]
     Indication: ANTIRETROVIRAL THERAPY
  3. AMIODARONE [Concomitant]
     Route: 048
  4. NIACIN [Interacting]
     Dosage: EXTENDED-RELEASE
     Route: 048
  5. METOPROLOL [Concomitant]
     Route: 048
  6. RALTEGRAVIR [Concomitant]
     Indication: ANTIRETROVIRAL THERAPY
     Route: 048
  7. ENFUVIRTIDE [Suspect]
     Indication: HIV INFECTION
     Route: 058
  8. ZIDOVUDINE [Concomitant]
     Indication: ANTIRETROVIRAL THERAPY
     Route: 048
  9. MARAVIROC [Concomitant]
     Indication: ANTIRETROVIRAL THERAPY
     Route: 048
  10. ENFUVIRTIDE [Interacting]
     Route: 058
  11. LEVOTHYROXINE [Concomitant]
     Indication: HYPOTHYROIDISM
     Route: 048
  12. MEXILETINE [Concomitant]
     Route: 048
  13. LISINOPRIL [Concomitant]
     Route: 048
  14. TENOFOVIR DISOPROXIL FUMARATE [Concomitant]
     Indication: ANTIRETROVIRAL THERAPY
     Route: 048
     Dates: start: 20070101

REACTIONS (3)
  - DRUG INTERACTION [None]
  - INJECTION SITE SWELLING [None]
  - INJECTION SITE NODULE [None]
